FAERS Safety Report 22017204 (Version 1)
Quarter: 2023Q1

REPORT INFORMATION
  Report Type: Spontaneous
  Country: HK (occurrence: HK)
  Receive Date: 20230221
  Receipt Date: 20230221
  Transmission Date: 20230418
  Serious: Yes (Other)
  Sender: FDA-Public Use
  Company Number: HK-BAYER-2023A021195

PATIENT

DRUGS (2)
  1. ULTRAVIST [Suspect]
     Active Substance: IOPROMIDE
     Indication: Computerised tomogram
     Dosage: UNK
     Dates: start: 20230210, end: 20230215
  2. FLUDEOXYGLUCOSE F-18 [Concomitant]
     Active Substance: FLUDEOXYGLUCOSE F-18
     Indication: Positron emission tomogram
     Dosage: UNK
     Dates: start: 20230210, end: 20230215

REACTIONS (2)
  - Hallucination [None]
  - Abnormal dreams [None]

NARRATIVE: CASE EVENT DATE: 20230210
